FAERS Safety Report 5650667-5 (Version None)
Quarter: 2008Q1

REPORT INFORMATION
  Report Type: 
  Country: None (occurrence: None)
  Receive Date: 20080305
  Receipt Date: 20080227
  Transmission Date: 20080703
  Serious: Yes (Hospitalization, Other)
  Sender: FDA-Public Use
  Company Number: PHHY2008JP02035

PATIENT
  Age: 53 Year
  Sex: Female

DRUGS (3)
  1. TEGRETOL [Suspect]
     Indication: EPILEPSY
     Route: 048
  2. CATECHOLAMINES [Concomitant]
     Indication: HYPOTENSION
  3. STEROIDS NOS [Concomitant]

REACTIONS (14)
  - ABSCESS DRAINAGE [None]
  - BLOOD CORTICOTROPHIN DECREASED [None]
  - BLOOD THYROID STIMULATING HORMONE INCREASED [None]
  - CARDIOVASCULAR DISORDER [None]
  - CONTINUOUS HAEMODIAFILTRATION [None]
  - CONVULSION [None]
  - DEEP VEIN THROMBOSIS [None]
  - HYPOTENSION [None]
  - HYPOTHALAMO-PITUITARY DISORDER [None]
  - HYPOTHYROIDISM [None]
  - RENAL FAILURE ACUTE [None]
  - THYROXINE DECREASED [None]
  - THYROXINE FREE DECREASED [None]
  - TRI-IODOTHYRONINE DECREASED [None]
